FAERS Safety Report 6702255-7 (Version None)
Quarter: 2010Q2

REPORT INFORMATION
  Report Type: 
  Country: None (occurrence: None)
  Receive Date: 20100429
  Receipt Date: 20100421
  Transmission Date: 20101027
  Serious: Yes (Hospitalization)
  Sender: FDA-Public Use
  Company Number: JP-MERCK-0612USA00318

PATIENT
  Age: 64 Year
  Sex: Male
  Weight: 70 kg

DRUGS (2)
  1. PRIMAXIN [Suspect]
     Indication: INFECTION
     Route: 041
     Dates: start: 20050722, end: 20050727
  2. MEROPENEM [Suspect]
     Indication: INFECTION
     Route: 042
     Dates: start: 20050727, end: 20050802

REACTIONS (1)
  - DRUG RASH WITH EOSINOPHILIA AND SYSTEMIC SYMPTOMS [None]
